FAERS Safety Report 5842739-7 (Version None)
Quarter: 2008Q3

REPORT INFORMATION
  Report Type: 
  Country: None (occurrence: None)
  Receive Date: 20080808
  Receipt Date: 20080730
  Transmission Date: 20090109
  Serious: Yes (Hospitalization, Other)
  Sender: FDA-Public Use
  Company Number: 08H-163-0314671-00

PATIENT
  Age: 26 Year
  Sex: Male

DRUGS (8)
  1. MEPERIDINE HCL [Suspect]
     Indication: MIGRAINE
  2. FENTANYL-100 [Suspect]
     Indication: MIGRAINE
     Dosage: 25 MCG, EVERY 3 DAYS, TRANSDERMAL
     Route: 062
  3. OXYCODONE HCL [Suspect]
     Indication: MIGRAINE
     Dosage: 5 MG, 2 IN 1 D
  4. METHADONE HCL [Suspect]
     Indication: MIGRAINE
  5. NORTIPTYLINE (NORTRIPTYLINE) [Concomitant]
  6. HYDROXYZINE HYDROCHLORIDE [Concomitant]
  7. AMITRIPTYLIUNE (AMITRIPTYLINE) [Concomitant]
  8. GABAPENTIN [Concomitant]

REACTIONS (3)
  - ABDOMINAL PAIN [None]
  - CONDITION AGGRAVATED [None]
  - OVERDOSE [None]
